FAERS Safety Report 7187074-2 (Version None)
Quarter: 2010Q4

REPORT INFORMATION
  Report Type: 
  Country: None (occurrence: None)
  Receive Date: 20101222
  Receipt Date: 20100907
  Transmission Date: 20110411
  Serious: No
  Sender: FDA-Public Use
  Company Number: US-AMGEN-TCS420205

PATIENT

DRUGS (6)
  1. ENBREL [Suspect]
     Indication: RHEUMATOID ARTHRITIS
     Dosage: 50 MG, QWK
     Route: 058
     Dates: start: 20100421, end: 20100630
  2. ACETAMINOPHEN AND HYDROCODONE BITARTRATE [Concomitant]
     Dosage: UNK UNK, PRN
     Route: 048
  3. ALENDRONATE SODIUM [Concomitant]
     Dosage: 70 MG, QWK
     Route: 048
  4. ALPRAZOLAM [Concomitant]
     Indication: ANXIETY
     Dosage: .5 MG, TID
     Route: 048
  5. AMLODIPINE [Concomitant]
     Dosage: 10 MG, QD
     Route: 048
  6. FOLIC ACID [Concomitant]
     Dosage: 1 MG, QD
     Route: 048

REACTIONS (11)
  - BLOOD URINE PRESENT [None]
  - HEADACHE [None]
  - HYPERSENSITIVITY [None]
  - INJECTION SITE ERYTHEMA [None]
  - INJECTION SITE PAIN [None]
  - INJECTION SITE PRURITUS [None]
  - INJECTION SITE REACTION [None]
  - INJECTION SITE SWELLING [None]
  - INJECTION SITE WARMTH [None]
  - RHEUMATOID ARTHRITIS [None]
  - URINARY TRACT INFECTION [None]
